FAERS Safety Report 14139881 (Version 2)
Quarter: 2017Q4

REPORT INFORMATION
  Report Type: Report from Study
  Country: None (occurrence: CA)
  Receive Date: 20171030
  Receipt Date: 20171114
  Transmission Date: 20180321
  Serious: Yes (Other)
  Sender: FDA-Public Use
  Company Number: CA-ABBVIE-17K-028-1857475-00

PATIENT
  Age: 45 Year
  Sex: Male

DRUGS (2)
  1. HUMIRA [Suspect]
     Active Substance: ADALIMUMAB
     Route: 058
     Dates: start: 2017
  2. HUMIRA [Suspect]
     Active Substance: ADALIMUMAB
     Indication: CROHN^S DISEASE
     Route: 058
     Dates: start: 20100709, end: 20161115

REACTIONS (7)
  - Post procedural complication [Unknown]
  - Synovial rupture [Recovered/Resolved]
  - Intestinal resection [Recovering/Resolving]
  - Enterostomy [Recovered/Resolved]
  - Mobility decreased [Not Recovered/Not Resolved]
  - Gastrointestinal wall thickening [Unknown]
  - Post procedural inflammation [Unknown]

NARRATIVE: CASE EVENT DATE: 201611
